FAERS Safety Report 20339663 (Version 1)
Quarter: 2022Q1

REPORT INFORMATION
  Report Type: Spontaneous
  Country: US (occurrence: US)
  Receive Date: 20220117
  Receipt Date: 20220117
  Transmission Date: 20220423
  Serious: No
  Sender: FDA-Public Use
  Company Number: US-TEVA-2022-US-1998177

PATIENT
  Sex: Male

DRUGS (1)
  1. EPOPROSTENOL [Suspect]
     Active Substance: EPOPROSTENOL
     Route: 065

REACTIONS (2)
  - Right ventricular dysfunction [Not Recovered/Not Resolved]
  - Right ventricular systolic pressure decreased [Not Recovered/Not Resolved]
